FAERS Safety Report 8222078-X (Version None)
Quarter: 2012Q1

REPORT INFORMATION
  Report Type: 
  Country: None (occurrence: None)
  Receive Date: 20120320
  Receipt Date: 20120313
  Transmission Date: 20120608
  Serious: Yes (Life-Threatening, Hospitalization)
  Sender: FDA-Public Use
  Company Number: CZ-GLAXOSMITHKLINE-B0783159B

PATIENT
  Sex: Female
  Weight: 79 kg

DRUGS (3)
  1. DEXAMETHASONE [Suspect]
     Indication: CHRONIC LYMPHOCYTIC LEUKAEMIA
     Dosage: 40MG CYCLIC
     Route: 048
     Dates: start: 20120125
  2. METFORMIN HYDROCHLORIDE [Concomitant]
     Indication: DIABETES MELLITUS
     Dosage: 250MG PER DAY
     Route: 048
     Dates: start: 20120222
  3. OFATUMUMAB [Suspect]
     Indication: CHRONIC LYMPHOCYTIC LEUKAEMIA
     Route: 042
     Dates: start: 20120125

REACTIONS (3)
  - HYPERGLYCAEMIA [None]
  - FEBRILE NEUTROPENIA [None]
  - HYPONATRAEMIA [None]
